FAERS Safety Report 17322647 (Version 1)
Quarter: 2020Q1

REPORT INFORMATION
  Report Type: Other
  Country: US (occurrence: US)
  Receive Date: 20200127
  Receipt Date: 20200127
  Transmission Date: 20200409
  Serious: No
  Sender: FDA-Public Use
  Company Number: US-ACORDA-ACO_161815_2019

PATIENT
  Age: 59 Year
  Sex: Female

DRUGS (1)
  1. AMPYRA [Suspect]
     Active Substance: DALFAMPRIDINE
     Indication: PRODUCT USED FOR UNKNOWN INDICATION
     Dosage: 10 MILLIGRAM, BID
     Route: 048
     Dates: start: 2015, end: 201910

REACTIONS (4)
  - Urinary tract infection [Unknown]
  - Back pain [Unknown]
  - Vulvovaginal pain [Unknown]
  - Headache [Unknown]

NARRATIVE: CASE EVENT DATE: 20191113
